FAERS Safety Report 12105896 (Version 1)
Quarter: 2016Q1

REPORT INFORMATION
  Report Type: Spontaneous
  Country: US (occurrence: US)
  Receive Date: 20160223
  Receipt Date: 20160223
  Transmission Date: 20160526
  Serious: Yes (Other)
  Sender: FDA-Public Use
  Company Number: US-BAYER-2016-033928

PATIENT
  Age: 82 Year
  Sex: Male
  Weight: 58.96 kg

DRUGS (4)
  1. LORATADINE. [Concomitant]
     Active Substance: LORATADINE
     Indication: RHINORRHOEA
  2. BAYER LOW DOSE [Suspect]
     Active Substance: ASPIRIN
     Indication: ISCHAEMIC HEART DISEASE PROPHYLAXIS
     Dosage: 1 DF, QD
     Route: 048
     Dates: start: 2009
  3. CLARITIN [Suspect]
     Active Substance: LORATADINE
     Indication: RHINORRHOEA
     Dosage: 1 DF, QD
     Route: 048
     Dates: end: 2012
  4. AFRIN ORIGINAL [Suspect]
     Active Substance: OXYMETAZOLINE HYDROCHLORIDE
     Indication: RHINORRHOEA
     Dosage: EVERY 12 HOURS
     Route: 055

REACTIONS (6)
  - Haemorrhage [None]
  - Haemorrhagic diathesis [None]
  - Off label use [None]
  - Drug ineffective [None]
  - Product use issue [None]
  - Epistaxis [None]

NARRATIVE: CASE EVENT DATE: 20160218
